FAERS Safety Report 11971262 (Version 1)
Quarter: 2016Q1

REPORT INFORMATION
  Report Type: Report from Study
  Country: US (occurrence: US)
  Receive Date: 20160128
  Receipt Date: 20160128
  Transmission Date: 20160526
  Serious: Yes (Other)
  Sender: FDA-Public Use
  Company Number: US-ABBVIE-15K-163-1393252-00

PATIENT
  Sex: Male

DRUGS (3)
  1. HUMIRA [Suspect]
     Active Substance: ADALIMUMAB
     Indication: RHEUMATOID ARTHRITIS
     Dosage: RHEUMATOLOGY STARTED
     Route: 058
     Dates: start: 2013
  2. ECOTRIN [Concomitant]
     Active Substance: ASPIRIN
     Indication: PRODUCT USED FOR UNKNOWN INDICATION
  3. HUMIRA [Suspect]
     Active Substance: ADALIMUMAB
     Route: 058
     Dates: end: 201410

REACTIONS (3)
  - Malignant neoplasm of auricular cartilage [Unknown]
  - Basal cell carcinoma [Recovered/Resolved]
  - Acrochordon [Unknown]

NARRATIVE: CASE EVENT DATE: 2014
